FAERS Safety Report 5952014-8 (Version None)
Quarter: 2008Q4

REPORT INFORMATION
  Report Type: 
  Country: None (occurrence: None)
  Receive Date: 20081113
  Receipt Date: 20071127
  Transmission Date: 20090506
  Serious: No
  Sender: FDA-Public Use
  Company Number: A0696066A

PATIENT
  Sex: Female

DRUGS (4)
  1. COREG [Suspect]
     Indication: HYPERTENSION
     Route: 048
     Dates: start: 20010101
  2. COREG CR [Suspect]
     Indication: HYPERTENSION
     Dosage: 40MG PER DAY
     Route: 048
     Dates: start: 20070701
  3. HYDROCHLOROTHIAZIDE [Concomitant]
  4. LIPITOR [Concomitant]

REACTIONS (1)
  - ALOPECIA [None]
